FAERS Safety Report 17062893 (Version 3)
Quarter: 2020Q4

REPORT INFORMATION
  Report Type: Other
  Country: DE (occurrence: DE)
  Receive Date: 20191122
  Receipt Date: 20201017
  Transmission Date: 20210113
  Serious: Yes (Hospitalization, Other)
  Sender: FDA-Public Use
  Company Number: DE-ROCHE-2234704

PATIENT
  Age: 50 Year
  Sex: Male

DRUGS (8)
  1. OCREVUS [Suspect]
     Active Substance: OCRELIZUMAB
     Route: 042
     Dates: start: 20200109
  2. CANDESARTAN. [Concomitant]
     Active Substance: CANDESARTAN
  3. OCREVUS [Suspect]
     Active Substance: OCRELIZUMAB
     Indication: SECONDARY PROGRESSIVE MULTIPLE SCLEROSIS
     Route: 042
     Dates: start: 20180719
  4. INSUMAN RAPID [Concomitant]
     Active Substance: INSULIN HUMAN
  5. HUMALOG [Concomitant]
     Active Substance: INSULIN LISPRO
  6. OCREVUS [Suspect]
     Active Substance: OCRELIZUMAB
     Route: 042
     Dates: start: 20190218
  7. FAMPYRA [Concomitant]
     Active Substance: DALFAMPRIDINE
  8. TRIMIPRAMIN [Concomitant]
     Active Substance: TRIMIPRAMINE
     Dosage: 0-0-1 NOCTE

REACTIONS (11)
  - Gait disturbance [Recovered/Resolved]
  - Skin laceration [Recovered/Resolved]
  - Multiple sclerosis relapse [Recovered/Resolved]
  - Bronchitis [Unknown]
  - Nervous system disorder [Recovered/Resolved]
  - Muscle strain [Recovered/Resolved]
  - Hypoaesthesia [Recovered/Resolved]
  - Muscular weakness [Recovered/Resolved]
  - Appendicitis [Recovered/Resolved]
  - Fall [Unknown]
  - Ingrowing nail [Recovered/Resolved]

NARRATIVE: CASE EVENT DATE: 20180719
